FAERS Safety Report 22912459 (Version 2)
Quarter: 2024Q3

REPORT INFORMATION
  Report Type: Report from Study
  Country: CA (occurrence: CA)
  Receive Date: 20230906
  Receipt Date: 20240807
  Transmission Date: 20241017
  Serious: Yes (Death, Hospitalization, Other)
  Sender: PFIZER
  Company Number: CA-PFIZER INC-202300292502

PATIENT
  Age: 65 Year
  Sex: Male

DRUGS (20)
  1. FILGRASTIM [Suspect]
     Active Substance: FILGRASTIM
     Indication: T-cell lymphoma stage III
     Dosage: 300 MG, EVERY 3 WEEKS
     Route: 058
  2. FILGRASTIM [Suspect]
     Active Substance: FILGRASTIM
     Indication: Febrile neutropenia
  3. LENALIDOMIDE [Suspect]
     Active Substance: LENALIDOMIDE
     Indication: T-cell lymphoma stage III
     Dosage: UNK
  4. LENALIDOMIDE [Suspect]
     Active Substance: LENALIDOMIDE
     Indication: Plasma cell myeloma refractory
     Dosage: UNK
  5. LENALIDOMIDE [Suspect]
     Active Substance: LENALIDOMIDE
     Indication: Plasma cell myeloma
  6. LENALIDOMIDE [Suspect]
     Active Substance: LENALIDOMIDE
     Indication: T-cell lymphoma stage III
     Dosage: 15 MG, 1X/DAY
     Route: 048
  7. LENALIDOMIDE [Suspect]
     Active Substance: LENALIDOMIDE
     Indication: Plasma cell myeloma refractory
     Dosage: 15 MG, 1X/DAY
     Route: 048
  8. LENALIDOMIDE [Suspect]
     Active Substance: LENALIDOMIDE
     Indication: Plasma cell myeloma
  9. ROMIDEPSIN [Suspect]
     Active Substance: ROMIDEPSIN
     Indication: T-cell lymphoma stage III
     Dosage: UNK
     Route: 065
  10. ROMIDEPSIN [Suspect]
     Active Substance: ROMIDEPSIN
     Dosage: 10 MG/M2
     Route: 065
  11. ACETAMINOPHEN [Concomitant]
     Active Substance: ACETAMINOPHEN
     Indication: Pyrexia
     Dosage: 500 MG 1 EVERY 4 HOURS
     Route: 048
  12. CALCIUM CARBONATE [Concomitant]
     Active Substance: CALCIUM CARBONATE
     Dosage: 600 MG, 1X/DAY
     Route: 048
  13. DEXAMETHASONE [Concomitant]
     Active Substance: DEXAMETHASONE
     Dosage: 4 MG, 1X/DAY
     Route: 048
  14. MAGNESIUM OXIDE [Concomitant]
     Active Substance: MAGNESIUM OXIDE
     Dosage: 420 MG, 1X/DAY
     Route: 048
  15. METOCLOPRAMIDE [Concomitant]
     Active Substance: METOCLOPRAMIDE
     Indication: Vomiting
     Dosage: 10 MG 1 EVERY 6 HOURS
     Route: 048
  16. METOCLOPRAMIDE [Concomitant]
     Active Substance: METOCLOPRAMIDE
     Indication: Nausea
  17. ONDANSETRON [Concomitant]
     Active Substance: ONDANSETRON
     Dosage: 8 MG, 1X/DAY
     Route: 048
  18. PANTOPRAZOLE [Concomitant]
     Active Substance: PANTOPRAZOLE
     Dosage: 40 MG, 1X/DAY
     Route: 048
  19. SODIUM CHLORIDE [Concomitant]
     Active Substance: SODIUM CHLORIDE
     Dosage: 1 DF, 1X/DAY
     Route: 048
  20. ZOPICLONE [Concomitant]
     Active Substance: ZOPICLONE
     Indication: Insomnia
     Dosage: 3.75 MG
     Route: 048

REACTIONS (9)
  - Chills [Fatal]
  - Dyspnoea [Fatal]
  - Electrolyte imbalance [Fatal]
  - Epistaxis [Fatal]
  - Fatigue [Fatal]
  - Febrile neutropenia [Fatal]
  - Muscle spasms [Fatal]
  - Ulcer [Fatal]
  - Off label use [Recovered/Resolved]
